FAERS Safety Report 14589841 (Version 1)
Quarter: 2018Q1

REPORT INFORMATION
  Report Type: Spontaneous
  Country: US (occurrence: US)
  Receive Date: 20180302
  Receipt Date: 20180302
  Transmission Date: 20180509
  Serious: No
  Sender: FDA-Public Use
  Company Number: US-EMD SERONO-7170174

PATIENT
  Sex: Female

DRUGS (1)
  1. REBIF [Suspect]
     Active Substance: INTERFERON BETA-1A
     Indication: MULTIPLE SCLEROSIS
     Route: 058
     Dates: start: 20070423

REACTIONS (13)
  - Injection site reaction [Not Recovered/Not Resolved]
  - Influenza like illness [Unknown]
  - Injection site pain [Unknown]
  - Anxiety [Not Recovered/Not Resolved]
  - Central nervous system lesion [Unknown]
  - Gait disturbance [Not Recovered/Not Resolved]
  - Muscular weakness [Not Recovered/Not Resolved]
  - Movement disorder [Unknown]
  - Nerve injury [Unknown]
  - Conjunctivitis [Unknown]
  - Dysstasia [Not Recovered/Not Resolved]
  - Malaise [Unknown]
  - Back disorder [Not Recovered/Not Resolved]

NARRATIVE: CASE EVENT DATE: 2017
